FAERS Safety Report 17550146 (Version 2)
Quarter: 2020Q1

REPORT INFORMATION
  Report Type: Spontaneous
  Country: US (occurrence: US)
  Receive Date: 20200317
  Receipt Date: 20200318
  Transmission Date: 20200409
  Serious: Yes (Other)
  Sender: FDA-Public Use
  Company Number: US-PFIZER INC-2020112399

PATIENT
  Age: 60 Year
  Sex: Female
  Weight: 58.97 kg

DRUGS (6)
  1. PREMARIN [Suspect]
     Active Substance: ESTROGENS, CONJUGATED
     Indication: VULVOVAGINAL DRYNESS
     Dosage: UNK
     Dates: start: 1989
  2. LISINOPRIL. [Concomitant]
     Active Substance: LISINOPRIL
     Indication: HYPERTENSION
     Dosage: 10 MG, DAILY
     Route: 048
  3. PREMARIN [Suspect]
     Active Substance: ESTROGENS, CONJUGATED
     Indication: HYSTERECTOMY
     Dosage: 0.6 MG, UNK, (REDUCED HER PREMARIN TABLETS FROM 0.6MG TO 0.3MG )
     Dates: start: 1989
  4. PREMARIN [Suspect]
     Active Substance: ESTROGENS, CONJUGATED
     Indication: OSTEOPOROSIS
     Dosage: 0.3 MG, DAILY, (TAKE ONE DAILY BY MOUTH)
     Route: 048
     Dates: start: 1989
  5. LISINOPRIL. [Concomitant]
     Active Substance: LISINOPRIL
     Dosage: 40 MG, DAILY
     Route: 048
  6. PREMARIN [Suspect]
     Active Substance: ESTROGENS, CONJUGATED
     Dosage: ONE HALF GRAM TO A GRAM , 2X/WEEK, (USE TWICE WEEKLY ONE HALF GRAM TO A GRAM TO THE VAGINA)
     Route: 067
     Dates: start: 1993

REACTIONS (2)
  - Gastrooesophageal reflux disease [Unknown]
  - Laryngitis [Not Recovered/Not Resolved]

NARRATIVE: CASE EVENT DATE: 2003
